FAERS Safety Report 10947151 (Version 2)
Quarter: 2015Q2

REPORT INFORMATION
  Report Type: Spontaneous
  Country: US (occurrence: US)
  Receive Date: 20150321
  Receipt Date: 20150525
  Transmission Date: 20150821
  Serious: No
  Sender: FDA-Public Use
  Company Number: US-JNJFOC-20141110885

PATIENT
  Age: 52 Year
  Sex: Female
  Weight: 89.81 kg

DRUGS (2)
  1. TOPAMAX [Suspect]
     Active Substance: TOPIRAMATE
     Indication: MIGRAINE
     Route: 048
     Dates: start: 201405
  2. TOPROL XL [Concomitant]
     Active Substance: METOPROLOL SUCCINATE
     Indication: MITRAL VALVE PROLAPSE
     Route: 065

REACTIONS (3)
  - Paraesthesia [Unknown]
  - Thinking abnormal [Unknown]
  - Language disorder [Unknown]

NARRATIVE: CASE EVENT DATE: 201405
